FAERS Safety Report 5950602-6 (Version None)
Quarter: 2008Q4

REPORT INFORMATION
  Report Type: 
  Country: None (occurrence: None)
  Receive Date: 20081022
  Receipt Date: 20080724
  Transmission Date: 20090506
  Serious: No
  Sender: FDA-Public Use
  Company Number: ALL1-2008-02111

PATIENT
  Sex: Male

DRUGS (1)
  1. VYVANSE [Suspect]
     Dosage: 70 MG, 1X/DAY:QD,ORAL; 140 MG, 1X/DAY:QD (2 X 70 MG CAPSULES)
     Route: 048

REACTIONS (2)
  - DRUG INEFFECTIVE [None]
  - OVERDOSE [None]
